FAERS Safety Report 9388104 (Version 1)
Quarter: 2013Q3

REPORT INFORMATION
  Report Type: Report from Study
  Country: US (occurrence: US)
  Receive Date: 20130708
  Receipt Date: 20130708
  Transmission Date: 20140515
  Serious: Yes (Other)
  Sender: FDA-Public Use
  Company Number: US-JNJFOC-20130701652

PATIENT
  Sex: 0

DRUGS (2)
  1. STELARA [Suspect]
     Indication: PRODUCT USED FOR UNKNOWN INDICATION
     Dosage: 2 INJECTIONS
     Route: 058
     Dates: start: 2011
  2. STELARA [Suspect]
     Indication: PRODUCT USED FOR UNKNOWN INDICATION
     Dosage: 3RD INJECTION
     Route: 058

REACTIONS (5)
  - Fluid retention [Unknown]
  - Vision blurred [Unknown]
  - Dry eye [Unknown]
  - Mood swings [Unknown]
  - Drug effect incomplete [Unknown]
